FAERS Safety Report 22898325 (Version 5)
Quarter: 2023Q4

REPORT INFORMATION
  Report Type: Spontaneous
  Country: CA (occurrence: CA)
  Receive Date: 20230903
  Receipt Date: 20231202
  Transmission Date: 20240109
  Serious: Yes (Other)
  Sender: FDA-Public Use
  Company Number: CA-CELLTRION INC.-2022CA003713

PATIENT

DRUGS (19)
  1. INFLECTRA [Suspect]
     Active Substance: INFLIXIMAB-DYYB
     Indication: Colitis ulcerative
     Dosage: 5 MG/KG, FIRST DOSE RECEIVED IN HOSPITAL
     Route: 042
     Dates: start: 20210218, end: 20210218
  2. INFLECTRA [Suspect]
     Active Substance: INFLIXIMAB-DYYB
     Indication: Crohn^s disease
     Dosage: 300 MG, Q 2, 6 WEEKS THEN EVERY 8 WEEKS
     Route: 042
     Dates: start: 20210304
  3. INFLECTRA [Suspect]
     Active Substance: INFLIXIMAB-DYYB
     Dosage: 300 MG, Q 2, 6 WEEKS THEN EVERY 8 WEEKS
     Route: 042
     Dates: start: 20211119
  4. INFLECTRA [Suspect]
     Active Substance: INFLIXIMAB-DYYB
     Dosage: 300 MG, Q 2, 6 WEEKS THEN EVERY 8 WEEKS
     Route: 042
     Dates: start: 20220128
  5. INFLECTRA [Suspect]
     Active Substance: INFLIXIMAB-DYYB
     Dosage: 300 MG, Q 2, 6 WEEKS THEN EVERY 8 WEEKS
     Route: 042
     Dates: start: 20220520
  6. INFLECTRA [Suspect]
     Active Substance: INFLIXIMAB-DYYB
     Dosage: 300 MG, AFTER 8 WEEKS
     Route: 042
     Dates: start: 20230616, end: 20230616
  7. INFLECTRA [Suspect]
     Active Substance: INFLIXIMAB-DYYB
     Dosage: 300 MG, AFTER 8 WEEKS
     Route: 042
     Dates: start: 20231006
  8. AG METOPROLOL L [Concomitant]
     Dosage: 25 MG, DOSAGE FREQUENCY UNKNOWN
     Route: 048
  9. ANTIOXIDANT FORMULA [Concomitant]
     Dosage: UNK
  10. ASPIRIN [Concomitant]
     Active Substance: ASPIRIN
     Dosage: 81 MG, DOSAGE FREQUENCY UNKNOWN
     Route: 048
  11. FERROUS FUMARATE [Concomitant]
     Active Substance: FERROUS FUMARATE
     Dosage: 1 DF, DOSAGE INFORMATION NOT AVAILABLE
     Route: 065
  12. LEFLUNOMIDE [Concomitant]
     Active Substance: LEFLUNOMIDE
     Dosage: 20 MG, DOSAGE FREQUENCY UNKNOWN
     Route: 048
  13. NICOTINE [Concomitant]
     Active Substance: NICOTINE
     Dosage: 7 MG, DOSAGE FREQUENCY UNKNOWN
     Route: 062
  14. FISH OIL [Concomitant]
     Active Substance: FISH OIL
     Dosage: 1 DF, DOSAGE INFORMATION NOT AVAILABLE
     Route: 065
  15. PREDNISONE [Concomitant]
     Active Substance: PREDNISONE
     Dosage: 5 MG, 1X/DAY
     Route: 048
  16. SOLU-MEDROL [Concomitant]
     Active Substance: METHYLPREDNISOLONE SODIUM SUCCINATE
     Dosage: 40 MG, DAILY
     Route: 042
  17. TAMOXIFEN CITRATE [Concomitant]
     Active Substance: TAMOXIFEN CITRATE
     Dosage: 20 MG, DOSAGE FREQUENCY UNKNOWN
     Route: 048
  18. WELLBUTRIN XL [Concomitant]
     Active Substance: BUPROPION HYDROCHLORIDE
     Dosage: 300 MG, DOSAGE FREQUENCY UNKNOWN
     Route: 048
  19. PREGABALIN [Concomitant]
     Active Substance: PREGABALIN
     Dosage: 150 MG
     Route: 048

REACTIONS (13)
  - Large intestinal stenosis [Unknown]
  - Rectal haemorrhage [Recovered/Resolved]
  - Therapeutic response shortened [Unknown]
  - COVID-19 [Unknown]
  - Weight increased [Unknown]
  - Enteritis [Unknown]
  - Colitis [Unknown]
  - Faeces soft [Unknown]
  - Off label use [Unknown]
  - Off label use [Unknown]
  - Intentional product use issue [Unknown]
  - Inappropriate schedule of product administration [Unknown]
  - Off label use [Unknown]

NARRATIVE: CASE EVENT DATE: 20220101
